FAERS Safety Report 8260842-1 (Version None)
Quarter: 2012Q2

REPORT INFORMATION
  Report Type: 
  Country: None (occurrence: None)
  Receive Date: 20120402
  Receipt Date: 20120319
  Transmission Date: 20120825
  Serious: Yes (Other)
  Sender: FDA-Public Use
  Company Number: US-1191229

PATIENT
  Age: 77 Year
  Sex: Female
  Weight: 49.8957 kg

DRUGS (5)
  1. VOLTAREN [Concomitant]
  2. LIDOCAINE [Concomitant]
  3. IODINE [Concomitant]
  4. BSS [Suspect]
     Indication: INTRAOCULAR LENS IMPLANT
     Dosage: INTRAOCULAR
     Route: 031
     Dates: start: 20111220, end: 20111220
  5. BETADINE [Suspect]
     Indication: INTRAOCULAR LENS IMPLANT
     Dosage: OPHTHALMIC
     Route: 047

REACTIONS (2)
  - TOXIC ANTERIOR SEGMENT SYNDROME [None]
  - POST PROCEDURAL INFECTION [None]
